FAERS Safety Report 13229201 (Version 1)
Quarter: 2017Q1

REPORT INFORMATION
  Report Type: Spontaneous
  Country: US (occurrence: US)
  Receive Date: 20170212
  Receipt Date: 20170212
  Transmission Date: 20170428
  Serious: Yes (Death, Other)
  Sender: FDA-Public Use
  Company Number: None

PATIENT
  Age: 64 Year
  Sex: Female
  Weight: 95 kg

DRUGS (29)
  1. FAMOTIDINE. [Concomitant]
     Active Substance: FAMOTIDINE
  2. INSULIN GLARGINE [Concomitant]
     Active Substance: INSULIN GLARGINE
  3. NORMOSOL-R [Concomitant]
     Active Substance: MAGNESIUM CHLORIDE\POTASSIUM CHLORIDE\SODIUM ACETATE ANHYDROUS\SODIUM CHLORIDE\SODIUM GLUCONATE
  4. ALTEPLASE [Suspect]
     Active Substance: ALTEPLASE
     Indication: THROMBOLYSIS
     Dosage: ?          OTHER FREQUENCY:PER HOUR;?
     Route: 041
     Dates: start: 20161202, end: 20161208
  5. PROTAMINE [Concomitant]
     Active Substance: PROTAMINE
  6. RANOLAZINE [Concomitant]
     Active Substance: RANOLAZINE
  7. VANCOMYCIN [Concomitant]
     Active Substance: VANCOMYCIN
  8. METOCLOPRAMIDE. [Concomitant]
     Active Substance: METOCLOPRAMIDE
  9. AMLODIPINE [Concomitant]
     Active Substance: AMLODIPINE BESYLATE
  10. ASPIRIN. [Concomitant]
     Active Substance: ASPIRIN
  11. ATORVASTATIN [Concomitant]
     Active Substance: ATORVASTATIN
  12. HEPARIN [Concomitant]
     Active Substance: HEPARIN SODIUM
  13. METOPROLOL TARTRATE. [Concomitant]
     Active Substance: METOPROLOL TARTRATE
  14. DEXTROSE 5% [Concomitant]
     Active Substance: DEXTROSE
  15. MORPHINE PCA [Concomitant]
     Active Substance: MORPHINE
  16. NORMAL SALINE [Concomitant]
     Active Substance: SODIUM CHLORIDE
  17. VASOPRESSIN. [Concomitant]
     Active Substance: VASOPRESSIN
  18. OSCAL-500 [Concomitant]
  19. CEFEPIME [Concomitant]
     Active Substance: CEFEPIME HYDROCHLORIDE
  20. GABAPENTIN. [Concomitant]
     Active Substance: GABAPENTIN
  21. POLYETHYLENE GLYCOL [Concomitant]
     Active Substance: POLYETHYLENE GLYCOLS
  22. CLOPIDOGREL [Concomitant]
     Active Substance: CLOPIDOGREL BISULFATE
  23. HYDRALAZINE [Concomitant]
     Active Substance: HYDRALAZINE HYDROCHLORIDE
  24. INSULIN LISPRO [Concomitant]
     Active Substance: INSULIN LISPRO
  25. VITAMIN K [Concomitant]
     Active Substance: PHYTONADIONE
  26. POTASSIUM CHLORIDE. [Concomitant]
     Active Substance: POTASSIUM CHLORIDE
  27. TORSEMIDE. [Concomitant]
     Active Substance: TORSEMIDE
  28. NOREPINEPHRINE [Concomitant]
     Active Substance: NOREPINEPHRINE\NOREPINEPHRINE BITARTRATE
  29. SENNA-DOCUSATE [Concomitant]
     Active Substance: DOCUSATE SODIUM\SENNOSIDES

REACTIONS (1)
  - Subarachnoid haemorrhage [None]

NARRATIVE: CASE EVENT DATE: 20161208
